FAERS Safety Report 19944394 (Version 2)
Quarter: 2021Q4

REPORT INFORMATION
  Report Type: Report from Study
  Country: US (occurrence: US)
  Receive Date: 20211011
  Receipt Date: 20211018
  Transmission Date: 20220303
  Serious: Yes (Death, Hospitalization)
  Sender: FDA-Public Use
  Company Number: US-EISAI MEDICAL RESEARCH-EC-2021-100966

PATIENT
  Age: 60 Year
  Sex: Female

DRUGS (6)
  1. LENVIMA [Suspect]
     Active Substance: LENVATINIB
     Indication: Renal cell carcinoma
     Route: 048
     Dates: start: 20210820, end: 2021
  2. LENVIMA [Suspect]
     Active Substance: LENVATINIB
     Route: 048
     Dates: start: 202109, end: 20211002
  3. LISINOPRIL [Concomitant]
     Active Substance: LISINOPRIL
  4. PREDNISONE [Concomitant]
     Active Substance: PREDNISONE
  5. EVEROLIMUS [Concomitant]
     Active Substance: EVEROLIMUS
  6. LASIX [Concomitant]
     Active Substance: FUROSEMIDE

REACTIONS (6)
  - Decubitus ulcer [Recovering/Resolving]
  - Dehydration [Recovering/Resolving]
  - Renal failure [Unknown]
  - Intestinal perforation [Unknown]
  - Blood potassium decreased [Recovering/Resolving]
  - Malignant neoplasm progression [Fatal]

NARRATIVE: CASE EVENT DATE: 20210101
